FAERS Safety Report 6937797-2 (Version None)
Quarter: 2010Q3

REPORT INFORMATION
  Report Type: 
  Country: None (occurrence: None)
  Receive Date: 20100820
  Receipt Date: 20100820
  Transmission Date: 20110219
  Serious: Yes (Other)
  Sender: FDA-Public Use
  Company Number: None

PATIENT
  Sex: Female
  Weight: 65.7716 kg

DRUGS (2)
  1. LORAZEPAM [Suspect]
     Indication: ANXIETY
     Dosage: 2 TWICE ORAL
     Route: 048
     Dates: start: 20100101, end: 20100801
  2. TEMAZEPAM [Suspect]
     Indication: INSOMNIA
     Dosage: BEDTIME ORAL
     Route: 048
     Dates: start: 20100101, end: 20100801

REACTIONS (3)
  - DRUG INEFFECTIVE [None]
  - PANIC ATTACK [None]
  - TOXICOLOGIC TEST ABNORMAL [None]
